FAERS Safety Report 5018018-7 (Version None)
Quarter: 2006Q2

REPORT INFORMATION
  Report Type: 
  Country: None (occurrence: None)
  Receive Date: 20060530
  Receipt Date: 20050505
  Transmission Date: 20061013
  Serious: Yes (Hospitalization)
  Sender: FDA-Public Use
  Company Number: 2005071588

PATIENT
  Age: 49 Year
  Sex: Female

DRUGS (7)
  1. LYRICA [Suspect]
     Indication: EPILEPSY
     Dosage: 50 MG (50 MG, 1 IN 1 D), ORAL
     Route: 048
     Dates: start: 20050131, end: 20050203
  2. SOLIFENACIN SUCCINATE (SOLIFENACIN SUCCINATE) [Suspect]
     Indication: URINARY INCONTINENCE
     Dosage: 5 MG (5 MG, 1 IN 1 D), ORAL
     Route: 048
     Dates: start: 20050101
  3. CARBAMAZEPINE [Concomitant]
  4. VALPROATE SODIUM [Concomitant]
  5. ALENDRONATE SODIUM [Concomitant]
  6. RISPERIDONE [Concomitant]
  7. LEKOVIT CA (CALCIUM CARBONATE, COLECALCIFEROL) [Concomitant]

REACTIONS (8)
  - BLOOD CREATININE INCREASED [None]
  - BLOOD GLUCOSE INCREASED [None]
  - BLOOD UREA INCREASED [None]
  - BRADYCARDIA [None]
  - CONFUSIONAL STATE [None]
  - DEPRESSED LEVEL OF CONSCIOUSNESS [None]
  - HYPERKALAEMIA [None]
  - HYPOTENSION [None]
